FAERS Safety Report 7012692-1 (Version None)
Quarter: 2010Q3

REPORT INFORMATION
  Report Type: 
  Country: None (occurrence: None)
  Receive Date: 20100913
  Receipt Date: 20091211
  Transmission Date: 20110219
  Serious: Yes (Other)
  Sender: FDA-Public Use
  Company Number: 2009SP041178

PATIENT
  Age: 33 Year
  Sex: Female

DRUGS (3)
  1. IMPLANON [Suspect]
     Indication: PRODUCT USED FOR UNKNOWN INDICATION
     Dosage: 1 DF; SBDE; PRESENT
     Dates: start: 20090325
  2. FLAGYL (CON.) [Concomitant]
  3. FEROSOL (CON.) [Concomitant]

REACTIONS (2)
  - MENSTRUATION IRREGULAR [None]
  - OVARIAN CYST [None]
